FAERS Safety Report 8937896 (Version 1)
Quarter: 2012Q4

REPORT INFORMATION
  Report Type: Spontaneous
  Country: US (occurrence: None)
  Receive Date: 20121128
  Receipt Date: 20121128
  Transmission Date: 20130627
  Serious: Yes (Other)
  Sender: FDA-Public Use
  Company Number: None

PATIENT
  Age: 54 Year
  Sex: Female
  Weight: 80.29 kg

DRUGS (2)
  1. SINGULAIR 10MG UNKNOWN [Suspect]
     Dosage: 10mg  1 tab daily po
     Route: 048
     Dates: start: 20121024, end: 20121119
  2. SINGULAIR 10MG UNKNOWN [Suspect]
     Dosage: 10mg  1 tab daily po
     Route: 048
     Dates: start: 20121024, end: 20121119

REACTIONS (1)
  - Ageusia [None]
